FAERS Safety Report 5009626-8 (Version None)
Quarter: 2006Q2

REPORT INFORMATION
  Report Type: 
  Country: None (occurrence: None)
  Receive Date: 20060524
  Receipt Date: 20050830
  Transmission Date: 20061013
  Serious: Yes (Death)
  Sender: FDA-Public Use
  Company Number: US-GLAXOSMITHKLINE-A0572594A

PATIENT
  Age: 41 Year
  Sex: Female

DRUGS (2)
  1. SEREVENT [Suspect]
     Indication: ASTHMA
     Route: 055
  2. CELEXA [Concomitant]
     Dates: start: 19990101

REACTIONS (13)
  - ASTHMA [None]
  - BRONCHIAL OBSTRUCTION [None]
  - CARDIAC ARREST [None]
  - DYSPNOEA [None]
  - LOSS OF CONSCIOUSNESS [None]
  - LUNG HYPERINFLATION [None]
  - LUNG INFILTRATION [None]
  - MUCOSAL MEMBRANE HYPERPLASIA [None]
  - MUSCLE HYPERTROPHY [None]
  - PULSE ABSENT [None]
  - RESPIRATORY ARREST [None]
  - RESPIRATORY DISORDER [None]
  - VOMITING [None]
